FAERS Safety Report 8479250-3 (Version None)
Quarter: 2012Q2

REPORT INFORMATION
  Report Type: 
  Country: None (occurrence: None)
  Receive Date: 20120629
  Receipt Date: 20120620
  Transmission Date: 20120825
  Serious: Yes (Hospitalization)
  Sender: FDA-Public Use
  Company Number: US-GLAXOSMITHKLINE-A0887251A

PATIENT
  Age: 57 Year
  Sex: Male
  Weight: 125 kg

DRUGS (6)
  1. ARICEPT [Concomitant]
  2. ATENOLOL [Concomitant]
  3. LIPITOR [Concomitant]
  4. AVANDIA [Suspect]
     Indication: DIABETES MELLITUS
     Dosage: 4MG TWICE PER DAY
     Route: 048
     Dates: start: 20001010, end: 20070624
  5. FLOVENT [Concomitant]
  6. ZESTRIL [Concomitant]

REACTIONS (4)
  - ATRIAL FLUTTER [None]
  - ATRIAL FIBRILLATION [None]
  - MYOCARDIAL INFARCTION [None]
  - CARDIAC FAILURE CONGESTIVE [None]
